FAERS Safety Report 4965570-3 (Version None)
Quarter: 2006Q1

REPORT INFORMATION
  Report Type: 
  Country: None (occurrence: None)
  Receive Date: 20060201
  Receipt Date: 20051018
  Transmission Date: 20060701
  Serious: No
  Sender: FDA-Public Use
  Company Number: 2005PV003416

PATIENT
  Age: 48 Year
  Sex: Male
  Weight: 104.3273 kg

DRUGS (7)
  1. BYETTA [Suspect]
     Indication: DIABETES MELLITUS NON-INSULIN-DEPENDENT
     Dosage: 10 MCG; BID; SC; 5 MCG; BID; SC
     Route: 058
     Dates: start: 20050702, end: 20050801
  2. BYETTA [Suspect]
     Indication: DIABETES MELLITUS NON-INSULIN-DEPENDENT
     Dosage: 10 MCG; BID; SC; 5 MCG; BID; SC
     Route: 058
     Dates: start: 20050802
  3. METFORMIN [Concomitant]
  4. AVANDIA [Concomitant]
  5. PRANDIN [Concomitant]
  6. HYDROCHLOROTHIAZIDE [Concomitant]
  7. ALLOPURINOL [Concomitant]

REACTIONS (6)
  - DYSGEUSIA [None]
  - DYSPEPSIA [None]
  - ERUCTATION [None]
  - FLATULENCE [None]
  - NAUSEA [None]
  - WEIGHT DECREASED [None]
